FAERS Safety Report 15145598 (Version 2)
Quarter: 2018Q3

REPORT INFORMATION
  Report Type: Spontaneous
  Country: BR (occurrence: BR)
  Receive Date: 20180713
  Receipt Date: 20180720
  Transmission Date: 20181010
  Serious: Yes (Death, Life-Threatening, Hospitalization, Other)
  Sender: FDA-Public Use
  Company Number: BR-BIOMARINAP-BR-2018-119048

PATIENT
  Age: 21 Month
  Sex: Male
  Weight: 11 kg

DRUGS (1)
  1. ALDURAZYME [Suspect]
     Active Substance: LARONIDASE
     Indication: PRODUCT USED FOR UNKNOWN INDICATION
     Dosage: 2 DF, QW
     Route: 041
     Dates: start: 20170801

REACTIONS (8)
  - Bone marrow transplant [Unknown]
  - Aspiration bronchial [Fatal]
  - Asthenia [Unknown]
  - Condition aggravated [Unknown]
  - Liver disorder [Unknown]
  - Organ failure [Unknown]
  - Renal disorder [Unknown]
  - Swelling [Unknown]

NARRATIVE: CASE EVENT DATE: 20180102
